FAERS Safety Report 5597737-8 (Version None)
Quarter: 2008Q1

REPORT INFORMATION
  Report Type: 
  Country: None (occurrence: None)
  Receive Date: 20080121
  Receipt Date: 20080111
  Transmission Date: 20080703
  Serious: Yes (Hospitalization)
  Sender: FDA-Public Use
  Company Number: BR-ABBOTT-06P-020-0349470-00

PATIENT
  Sex: Female
  Weight: 48.5 kg

DRUGS (14)
  1. HUMIRA [Suspect]
     Indication: RHEUMATOID ARTHRITIS
     Route: 058
     Dates: start: 20050401, end: 20061201
  2. HUMIRA [Suspect]
     Route: 058
     Dates: start: 20070801, end: 20070801
  3. UNKNOWN INJECTABLE [Interacting]
     Indication: THROMBOSIS PROPHYLAXIS
     Route: 050
  4. PREDNISONE [Concomitant]
     Indication: RHEUMATOID ARTHRITIS
     Route: 048
     Dates: start: 19860101
  5. METHOTREXATE [Concomitant]
     Indication: RHEUMATOID ARTHRITIS
     Route: 048
     Dates: start: 20050101
  6. METHOTREXATE [Concomitant]
     Route: 048
  7. ATENOLOL [Concomitant]
     Indication: HYPERTENSION
     Route: 048
     Dates: start: 20030101
  8. ATENOLOL [Concomitant]
     Dosage: 50 MG
     Route: 048
  9. ENALAPRIL MALEATE [Concomitant]
     Indication: HYPERTENSION
     Route: 048
     Dates: start: 20030101
  10. ENALAPRIL MALEATE [Concomitant]
     Dosage: 10 MG
     Route: 048
  11. FOLIC ACID [Concomitant]
     Indication: RHEUMATOID ARTHRITIS
     Route: 048
     Dates: start: 20050101
  12. FOLIC ACID [Concomitant]
     Route: 048
  13. DICLOFENAC [Concomitant]
     Indication: RHEUMATOID ARTHRITIS
     Route: 048
     Dates: start: 19860101
  14. CHLORTHALIDONE [Concomitant]
     Indication: HYPERTENSION
     Route: 048

REACTIONS (10)
  - ANAEMIA [None]
  - ARTHRITIS [None]
  - BLOOD CHOLESTEROL INCREASED [None]
  - BONE EROSION [None]
  - DISLOCATION OF VERTEBRA [None]
  - DRUG INTERACTION [None]
  - HAEMORRHAGE [None]
  - INSOMNIA [None]
  - PAIN [None]
  - RHEUMATOID ARTHRITIS [None]
